FAERS Safety Report 6709066-7 (Version None)
Quarter: 2010Q2

REPORT INFORMATION
  Report Type: 
  Country: None (occurrence: None)
  Receive Date: 20100504
  Receipt Date: 20100422
  Transmission Date: 20101027
  Serious: Yes (Death)
  Sender: FDA-Public Use
  Company Number: DE-JNJFOC-20100406983

PATIENT
  Age: 85 Year
  Sex: Female

DRUGS (5)
  1. REOPRO [Suspect]
     Indication: ACUTE MYOCARDIAL INFARCTION
     Dosage: INFUSION FROM 21:14 TO 00:01
     Route: 042
  2. REOPRO [Suspect]
     Dosage: BOLUS @ 21:10
     Route: 042
  3. HEPARIN [Concomitant]
  4. ACETYLSALICYLIC ACID [Concomitant]
  5. CLOPIDOGREL [Concomitant]

REACTIONS (2)
  - CARDIAC TAMPONADE [None]
  - MYOCARDIAL RUPTURE [None]
